FAERS Safety Report 9556272 (Version 1)
Quarter: 2013Q3

REPORT INFORMATION
  Report Type: Spontaneous
  Country: SE (occurrence: SE)
  Receive Date: 20130926
  Receipt Date: 20130926
  Transmission Date: 20140515
  Serious: Yes (Hospitalization)
  Sender: FDA-Public Use
  Company Number: PHHY2013SE106876

PATIENT
  Age: 14 Year
  Sex: Male

DRUGS (2)
  1. LEPONEX [Suspect]
     Dosage: UNK UKN, UNK
     Route: 048
  2. LEPONEX [Suspect]
     Dosage: 200 MG, DAILY
     Route: 048
     Dates: start: 20130410

REACTIONS (7)
  - Nephropathy toxic [Recovered/Resolved with Sequelae]
  - Neutropenia [Recovered/Resolved with Sequelae]
  - Neuroleptic malignant syndrome [Recovered/Resolved with Sequelae]
  - Disorientation [Unknown]
  - Pyrexia [Unknown]
  - Confusional state [Unknown]
  - Muscle rigidity [Unknown]
